FAERS Safety Report 5296385-7 (Version None)
Quarter: 2007Q2

REPORT INFORMATION
  Report Type: 
  Country: None (occurrence: None)
  Receive Date: 20070413
  Receipt Date: 20070411
  Transmission Date: 20071010
  Serious: Yes (Hospitalization)
  Sender: FDA-Public Use
  Company Number: US-BRISTOL-MYERS SQUIBB COMPANY-13722749

PATIENT
  Age: 40 Year
  Sex: Female
  Weight: 35 kg

DRUGS (3)
  1. CETUXIMAB [Suspect]
     Indication: RECTAL CANCER
     Route: 042
     Dates: start: 20070226
  2. XELODA [Suspect]
     Dates: start: 20070226
  3. RADIATION THERAPY [Suspect]

REACTIONS (2)
  - ILEUS [None]
  - RADIATION INJURY [None]
